FAERS Safety Report 8405512-1 (Version None)
Quarter: 2012Q2

REPORT INFORMATION
  Report Type: 
  Country: None (occurrence: None)
  Receive Date: 20120604
  Receipt Date: 20120525
  Transmission Date: 20120825
  Serious: No
  Sender: FDA-Public Use
  Company Number: US-BIOGENIDEC-2012BI014591

PATIENT
  Age: 53 Year
  Sex: Female

DRUGS (1)
  1. TYSABRI [Suspect]
     Indication: MULTIPLE SCLEROSIS
     Route: 042
     Dates: start: 20120411

REACTIONS (9)
  - GALLBLADDER DISORDER [None]
  - MUSCULOSKELETAL PAIN [None]
  - BONE PAIN [None]
  - FATIGUE [None]
  - NECK PAIN [None]
  - BACK PAIN [None]
  - DYSPEPSIA [None]
  - ASTHENIA [None]
  - GALLBLADDER OPERATION [None]
